FAERS Safety Report 9677568 (Version 1)
Quarter: 2013Q4

REPORT INFORMATION
  Report Type: Spontaneous
  Country: US (occurrence: None)
  Receive Date: 20131107
  Receipt Date: 20131107
  Transmission Date: 20140711
  Serious: No
  Sender: FDA-Public Use
  Company Number: None

PATIENT
  Age: 64 Year
  Sex: Female
  Weight: 73.48 kg

DRUGS (2)
  1. OMEPRAZOLE [Suspect]
     Indication: HELICOBACTER INFECTION
     Dosage: 1 PILL
     Route: 048
     Dates: start: 20130927, end: 20131102
  2. OMEPRAZOLE [Suspect]
     Indication: ULCER
     Dosage: 1 PILL
     Route: 048
     Dates: start: 20130927, end: 20131102

REACTIONS (4)
  - Blood urine present [None]
  - Pain [None]
  - Abdominal pain upper [None]
  - Flatulence [None]
